FAERS Safety Report 10098295 (Version 1)
Quarter: 2014Q2

REPORT INFORMATION
  Report Type: Spontaneous
  Country: US (occurrence: US)
  Receive Date: 20140423
  Receipt Date: 20140423
  Transmission Date: 20141212
  Serious: Yes (Hospitalization)
  Sender: FDA-Public Use
  Company Number: US-ROCHE-1382158

PATIENT
  Age: 75 Year
  Sex: Male

DRUGS (12)
  1. ROCEPHIN [Suspect]
     Indication: URINARY TRACT INFECTION
     Route: 065
     Dates: start: 20140405, end: 20140407
  2. CARDIZEM [Concomitant]
  3. DIGOXIN [Concomitant]
  4. SPIRONOLACTONE [Concomitant]
  5. BUMEX [Concomitant]
  6. ADVAIR [Concomitant]
  7. DUONEB [Concomitant]
  8. COMBIVENT [Concomitant]
  9. CLARITIN [Concomitant]
  10. MUCINEX [Concomitant]
  11. LEVAQUIN [Concomitant]
  12. BACTRIM DS [Concomitant]
     Route: 065

REACTIONS (3)
  - Confusional state [Not Recovered/Not Resolved]
  - Disease progression [Not Recovered/Not Resolved]
  - Delirium [Not Recovered/Not Resolved]
